FAERS Safety Report 13868991 (Version 4)
Quarter: 2018Q4

REPORT INFORMATION
  Report Type: Spontaneous
  Country: US (occurrence: US)
  Receive Date: 20170815
  Receipt Date: 20181019
  Transmission Date: 20190204
  Serious: Yes (Death, Hospitalization, Other)
  Sender: FDA-Public Use
  Company Number: US-PFIZER INC-2017347480

PATIENT
  Age: 80 Year
  Sex: Male
  Weight: 91 kg

DRUGS (16)
  1. SULINDAC. [Concomitant]
     Active Substance: SULINDAC
     Dosage: 150 MG
     Dates: start: 2017, end: 2017
  2. FOLIC ACID. [Concomitant]
     Active Substance: FOLIC ACID
     Dosage: 1 MG, UNK
     Dates: start: 2014
  3. BREO ELLIPTA [Concomitant]
     Active Substance: FLUTICASONE FUROATE\VILANTEROL TRIFENATATE
     Dosage: ONCE A DAY
     Dates: start: 2017
  4. FAMOTIDINE. [Concomitant]
     Active Substance: FAMOTIDINE
     Dosage: 20 MG
     Dates: start: 2014
  5. VALSARTAN. [Concomitant]
     Active Substance: VALSARTAN
     Dosage: 80 MG
     Dates: start: 2016
  6. XELJANZ [Suspect]
     Active Substance: TOFACITINIB CITRATE
     Indication: RHEUMATOID ARTHRITIS
     Dosage: 5 MG, 2X/DAY
     Route: 048
     Dates: start: 2015
  7. ZETIA [Concomitant]
     Active Substance: EZETIMIBE
     Dosage: 10 MG
     Dates: start: 2017
  8. METOPROLOL. [Concomitant]
     Active Substance: METOPROLOL
     Dosage: 25 MG
     Dates: start: 2014
  9. METOPROLOL. [Concomitant]
     Active Substance: METOPROLOL
     Dosage: UNK
     Dates: start: 2014
  10. VITAMIN D2 [Concomitant]
     Active Substance: ERGOCALCIFEROL
     Dosage: UNK
     Dates: start: 2014
  11. XELJANZ [Suspect]
     Active Substance: TOFACITINIB CITRATE
     Dosage: 5 MG, UNK
  12. XELJANZ [Suspect]
     Active Substance: TOFACITINIB CITRATE
     Dosage: 5 MG, UNK
  13. FLUTICASONE FUROATE [Concomitant]
     Active Substance: FLUTICASONE FUROATE
     Dosage: UNK
     Dates: start: 2012
  14. METHOTREXATE SODIUM. [Suspect]
     Active Substance: METHOTREXATE SODIUM
     Indication: RHEUMATOID ARTHRITIS
     Dosage: UNSPECIFIED DOSE 4X/WEEK
     Dates: start: 2016
  15. PROAIR HFA [Concomitant]
     Active Substance: ALBUTEROL SULFATE
     Dosage: UNK
     Dates: start: 2017
  16. AMITRIPTYLINE [Concomitant]
     Active Substance: AMITRIPTYLINE
     Dosage: 10 MG
     Dates: start: 2014

REACTIONS (7)
  - Sepsis [Fatal]
  - Myocardial infarction [Fatal]
  - Skin laceration [Recovered/Resolved]
  - Oedema [Unknown]
  - Localised infection [Recovered/Resolved]
  - Respiratory disorder [Fatal]
  - Weight increased [Unknown]

NARRATIVE: CASE EVENT DATE: 2017
